FAERS Safety Report 14230025 (Version 1)
Quarter: 2017Q4

REPORT INFORMATION
  Report Type: Spontaneous
  Country: US (occurrence: None)
  Receive Date: 20171127
  Receipt Date: 20171127
  Transmission Date: 20180321
  Serious: No
  Sender: FDA-Public Use
  Company Number: None

PATIENT
  Sex: Female

DRUGS (2)
  1. IBRANCE [Suspect]
     Active Substance: PALBOCICLIB
     Indication: BREAST CANCER
     Dosage: 125 MG QD FOR 21 DAYS ONN 7 DAYS OFF PO
     Route: 048
     Dates: start: 20170307, end: 20170329
  2. IBRANCE [Suspect]
     Active Substance: PALBOCICLIB
     Indication: BREAST CANCER
     Dosage: 100 MG QD FOR 21 DAYS ONN 7 DAYS OFF PO
     Route: 048
     Dates: start: 20170508

REACTIONS (2)
  - Chest pain [None]
  - Fatigue [None]
